FAERS Safety Report 6651095-6 (Version None)
Quarter: 2010Q1

REPORT INFORMATION
  Report Type: 
  Country: None (occurrence: None)
  Receive Date: 20100325
  Receipt Date: 20100312
  Transmission Date: 20100710
  Serious: Yes (Other)
  Sender: FDA-Public Use
  Company Number: US-PFIZER INC-2010032596

PATIENT
  Sex: Female
  Weight: 63 kg

DRUGS (6)
  1. VISTARIL [Suspect]
     Indication: COLITIS
     Dosage: 25 MG, 3X/DAY
  2. VISTARIL [Suspect]
     Indication: ANXIETY
  3. VISTARIL [Suspect]
     Indication: HYPERSENSITIVITY
  4. VISTARIL [Suspect]
     Indication: PRURITUS
  5. VISTARIL [Suspect]
     Indication: MULTIPLE ALLERGIES
  6. TRAZODONE [Suspect]
     Indication: SLEEP DISORDER
     Dosage: 50 MG, DAILY

REACTIONS (3)
  - ABNORMAL DREAMS [None]
  - MYASTHENIA GRAVIS [None]
  - NIGHTMARE [None]
